FAERS Safety Report 6608372-4 (Version None)
Quarter: 2010Q1

REPORT INFORMATION
  Report Type: 
  Country: None (occurrence: None)
  Receive Date: 20100301
  Receipt Date: 20100217
  Transmission Date: 20100710
  Serious: Yes (Hospitalization)
  Sender: FDA-Public Use
  Company Number: JP-PFIZER INC-2009305274

PATIENT
  Age: 61 Year
  Sex: Female
  Weight: 52.6 kg

DRUGS (8)
  1. SUNITINIB MALATE [Suspect]
     Indication: METASTATIC RENAL CELL CARCINOMA
     Dosage: 50 MG, 1X/DAY
     Route: 048
     Dates: start: 20090630
  2. AMLODIPINE [Concomitant]
     Dosage: UNK
     Route: 048
  3. TASUOMIN [Concomitant]
     Dosage: UNK
     Route: 048
  4. VOGLIBOSE [Concomitant]
     Dosage: UNK
     Route: 048
  5. LIPITOR [Concomitant]
     Dosage: UNK
     Route: 048
  6. BIFIDOBACTERIUM BIFIDUM [Concomitant]
     Dosage: UNK
     Route: 048
  7. MUCOSTA [Concomitant]
     Dosage: UNK
     Route: 048
  8. DEXAMETHASONE [Concomitant]
     Dosage: UNK
     Route: 062
     Dates: start: 20090715

REACTIONS (3)
  - NEUTROPENIA [None]
  - PERITONSILLITIS [None]
  - THROMBOCYTOPENIA [None]
